FAERS Safety Report 8981402 (Version 2)
Quarter: 2013Q1

REPORT INFORMATION
  Report Type: Spontaneous
  Country: US (occurrence: US)
  Receive Date: 20121221
  Receipt Date: 20130110
  Transmission Date: 20140127
  Serious: No
  Sender: FDA-Public Use
  Company Number: US-PFIZER INC-2012320192

PATIENT
  Age: 47 Year
  Sex: Male
  Weight: 91.16 kg

DRUGS (10)
  1. SUTENT [Suspect]
     Indication: METASTATIC RENAL CELL CARCINOMA
     Dosage: 50 MG, 42 DAY CYCLE
     Dates: start: 20111214, end: 20120702
  2. SUTENT [Suspect]
     Dosage: 50 MG, CYCLIC (21 DAYS)
     Dates: start: 20120702
  3. LEVOTHYROXINE SODIUM [Suspect]
     Dosage: UNK
     Dates: start: 20121130
  4. HYDROCHLOROTHIAZIDE [Concomitant]
     Indication: HYPERTENSION
     Dosage: UNK
  5. ONDANSETRON [Concomitant]
     Indication: NAUSEA
     Dosage: UNK
  6. ONDANSETRON [Concomitant]
     Indication: VOMITING
  7. PROCHLORPERAZINE [Concomitant]
     Indication: NAUSEA
     Dosage: UNK
  8. PROCHLORPERAZINE [Concomitant]
     Indication: VOMITING
  9. PRILOSEC [Concomitant]
     Indication: DYSPEPSIA
     Dosage: UNK
  10. MIRALAX [Concomitant]
     Indication: CONSTIPATION
     Dosage: UNK

REACTIONS (13)
  - Disease progression [Unknown]
  - Metastatic renal cell carcinoma [Unknown]
  - Petechiae [Unknown]
  - Temperature intolerance [Unknown]
  - Face oedema [Recovered/Resolved]
  - Periorbital oedema [Recovered/Resolved]
  - Diarrhoea [Unknown]
  - Nausea [Unknown]
  - Vomiting [Unknown]
  - Yellow skin [Unknown]
  - Weight decreased [Unknown]
  - Decreased appetite [Unknown]
  - Off label use [Unknown]
